FAERS Safety Report 7823626-1 (Version None)
Quarter: 2011Q4

REPORT INFORMATION
  Report Type: 
  Country: None (occurrence: None)
  Receive Date: 20111019
  Receipt Date: 20111011
  Transmission Date: 20120403
  Serious: Yes (Other)
  Sender: FDA-Public Use
  Company Number: JP-ABBOTT-11P-087-0853656-00

PATIENT
  Age: 61 Year
  Sex: Male
  Weight: 42 kg

DRUGS (12)
  1. ETHAMBUTOL HYDROCHLORIDE [Concomitant]
     Indication: MYCOBACTERIUM AVIUM COMPLEX INFECTION
  2. CLARITHROMYCIN [Suspect]
     Indication: MYCOBACTERIUM AVIUM COMPLEX INFECTION
  3. ITRACONAZOLE [Suspect]
     Indication: ATYPICAL MYCOBACTERIAL INFECTION
  4. STREPTOMICIN [Concomitant]
     Indication: ATYPICAL MYCOBACTERIAL INFECTION
  5. RIFAMPIN [Interacting]
     Indication: ATYPICAL MYCOBACTERIAL INFECTION
  6. RIFAMPIN [Interacting]
     Indication: MYCOBACTERIUM AVIUM COMPLEX INFECTION
  7. ETHAMBUTOL HYDROCHLORIDE [Concomitant]
     Indication: ATYPICAL MYCOBACTERIAL INFECTION
  8. CLARITHROMYCIN [Suspect]
     Indication: ATYPICAL MYCOBACTERIAL INFECTION
  9. VORICONAZOLE [Concomitant]
     Indication: ATYPICAL MYCOBACTERIAL INFECTION
  10. STREPTOMICIN [Concomitant]
     Indication: MYCOBACTERIUM AVIUM COMPLEX INFECTION
  11. LEVOFLOXACIN [Concomitant]
     Indication: ATYPICAL MYCOBACTERIAL INFECTION
  12. LEVOFLOXACIN [Concomitant]
     Indication: MYCOBACTERIUM AVIUM COMPLEX INFECTION

REACTIONS (5)
  - ASPERGILLOMA [None]
  - WEIGHT DECREASED [None]
  - PULMONARY CAVITATION [None]
  - LUNG INFILTRATION [None]
  - COUGH [None]
